FAERS Safety Report 21124536 (Version 1)
Quarter: 2022Q3

REPORT INFORMATION
  Report Type: Spontaneous
  Country: US (occurrence: US)
  Receive Date: 20220725
  Receipt Date: 20220725
  Transmission Date: 20221027
  Serious: Yes (Other)
  Sender: FDA-Public Use
  Company Number: US-009507513-2207USA005565

PATIENT
  Age: 61 Year
  Sex: Female

DRUGS (3)
  1. DIFICID [Suspect]
     Active Substance: FIDAXOMICIN
     Indication: Clostridium difficile infection
     Dosage: 200 MILLIGRAM, BID
     Route: 048
     Dates: start: 202205, end: 202205
  2. VANCOMYCIN [Concomitant]
     Active Substance: VANCOMYCIN
     Indication: Clostridium difficile infection
     Dosage: 1000 MG, FOUR PILLS A DAY
  3. VANCOMYCIN [Concomitant]
     Active Substance: VANCOMYCIN
     Dosage: DOSE SLOWLY REDUCED
     Dates: start: 202201, end: 202204

REACTIONS (2)
  - Clostridium difficile infection [Not Recovered/Not Resolved]
  - Absence of immediate treatment response [Unknown]

NARRATIVE: CASE EVENT DATE: 20220501
